FAERS Safety Report 13504116 (Version 10)
Quarter: 2019Q4

REPORT INFORMATION
  Report Type: Report from Study
  Country: CA (occurrence: CA)
  Receive Date: 20170502
  Receipt Date: 20191023
  Transmission Date: 20200122
  Serious: Yes (Hospitalization, Other)
  Sender: FDA-Public Use
  Company Number: PHHY2017CA003453

PATIENT
  Age: 76 Year
  Sex: Male

DRUGS (2)
  1. SANDOSTATIN [Suspect]
     Active Substance: OCTREOTIDE ACETATE
     Indication: CARCINOID SYNDROME
     Dosage: 50 UG, TID
     Route: 058
     Dates: start: 20161223, end: 20160105
  2. SANDOSTATIN LAR DEPOT [Suspect]
     Active Substance: OCTREOTIDE ACETATE
     Indication: CARCINOID SYNDROME
     Dosage: 20 MG, QMO (EVERY 4 WEEKS)
     Route: 030
     Dates: start: 20161223

REACTIONS (27)
  - Insomnia [Unknown]
  - Erythema [Recovered/Resolved]
  - Pruritus [Unknown]
  - Dyspnoea [Unknown]
  - Back pain [Unknown]
  - Dizziness [Unknown]
  - Pulmonary embolism [Recovered/Resolved]
  - Renal impairment [Unknown]
  - Chest pain [Unknown]
  - Malaise [Unknown]
  - Burning sensation [Recovered/Resolved]
  - Headache [Unknown]
  - Lung disorder [Unknown]
  - Eczema [Unknown]
  - Nausea [Unknown]
  - Dysphagia [Unknown]
  - Carotid artery occlusion [Unknown]
  - Coronary artery occlusion [Unknown]
  - Blood pressure increased [Unknown]
  - Palpitations [Unknown]
  - Stress [Unknown]
  - Acne [Unknown]
  - Amnesia [Unknown]
  - Neoplasm progression [Unknown]
  - Loss of consciousness [Unknown]
  - Hepatic neoplasm [Unknown]
  - Cardiac disorder [Unknown]

NARRATIVE: CASE EVENT DATE: 20170413
